FAERS Safety Report 9225383 (Version 2)
Quarter: 2015Q1

REPORT INFORMATION
  Report Type: Spontaneous
  Country: FR (occurrence: FR)
  Receive Date: 20130411
  Receipt Date: 20150130
  Transmission Date: 20150721
  Serious: Yes (Life-Threatening, Other)
  Sender: FDA-Public Use
  Company Number: FR-ELI_LILLY_AND_COMPANY-FR201304002970

PATIENT
  Age: 68 Year
  Sex: Female

DRUGS (2)
  1. EFIENT [Suspect]
     Active Substance: PRASUGREL HYDROCHLORIDE
     Indication: PRODUCT USED FOR UNKNOWN INDICATION
     Dosage: 10 MG, UNKNOWN
     Route: 048
     Dates: start: 20120213, end: 201212
  2. KARDEGIC [Concomitant]
     Active Substance: ASPIRIN LYSINE
     Dosage: 75 MG, UNK

REACTIONS (6)
  - Pyramidal tract syndrome [Unknown]
  - Paraparesis [Recovering/Resolving]
  - Extradural haematoma [Recovered/Resolved with Sequelae]
  - Bladder dysfunction [Not Recovered/Not Resolved]
  - Anorectal disorder [Not Recovered/Not Resolved]
  - Thrombosis in device [Recovered/Resolved]

NARRATIVE: CASE EVENT DATE: 20121210
